FAERS Safety Report 6210116-5 (Version None)
Quarter: 2009Q2

REPORT INFORMATION
  Report Type: 
  Country: None (occurrence: None)
  Receive Date: 20090601
  Receipt Date: 20090528
  Transmission Date: 20091009
  Serious: Yes (Death, Life-Threatening, Hospitalization)
  Sender: FDA-Public Use
  Company Number: JP-ABBOTT-09P-087-0570155-00

PATIENT
  Sex: Female
  Weight: 50.5 kg

DRUGS (18)
  1. HUMIRA [Suspect]
     Indication: RHEUMATOID ARTHRITIS
     Route: 058
     Dates: start: 20080813, end: 20090311
  2. PREDNISOLONE [Concomitant]
     Indication: RHEUMATOID ARTHRITIS
     Dates: end: 20080910
  3. PREDNISOLONE [Concomitant]
     Dates: start: 20080911, end: 20081104
  4. PREDNISOLONE [Concomitant]
     Dates: start: 20081105, end: 20081118
  5. PREDNISOLONE [Concomitant]
     Dates: start: 20081119, end: 20081202
  6. PREDNISOLONE [Concomitant]
     Dates: start: 20081203, end: 20090113
  7. PREDNISOLONE [Concomitant]
     Dates: start: 20090114, end: 20090425
  8. RABEPRAZOLE SODIUM [Concomitant]
     Indication: DRUG USE FOR UNKNOWN INDICATION
  9. NIFEDIPINE [Concomitant]
     Indication: DRUG USE FOR UNKNOWN INDICATION
  10. AZOSEMIDE [Concomitant]
     Indication: DRUG USE FOR UNKNOWN INDICATION
  11. POLAPREZINC [Concomitant]
     Indication: DRUG USE FOR UNKNOWN INDICATION
  12. ALENDRONATE HYDRATE SODIUM [Concomitant]
     Indication: DRUG USE FOR UNKNOWN INDICATION
  13. KETOPROFEN [Concomitant]
     Indication: DRUG USE FOR UNKNOWN INDICATION
  14. VOGLIBOSE [Concomitant]
     Indication: DRUG USE FOR UNKNOWN INDICATION
  15. METHOTREXATE [Concomitant]
     Indication: DRUG USE FOR UNKNOWN INDICATION
     Dates: start: 20080911, end: 20081021
  16. METHOTREXATE [Concomitant]
     Dates: start: 20081022, end: 20090425
  17. FOLIC ACID [Concomitant]
     Indication: DRUG USE FOR UNKNOWN INDICATION
  18. SALAZOSULFAPYRIDINE [Concomitant]
     Indication: RHEUMATOID ARTHRITIS
     Dates: start: 20080122, end: 20080910

REACTIONS (2)
  - GASTRIC CANCER [None]
  - INTERSTITIAL LUNG DISEASE [None]
